FAERS Safety Report 23560156 (Version 1)
Quarter: 2024Q1

REPORT INFORMATION
  Report Type: Spontaneous
  Country: US (occurrence: None)
  Receive Date: 20240223
  Receipt Date: 20240223
  Transmission Date: 20240410
  Serious: No
  Sender: FDA-Public Use
  Company Number: None

PATIENT
  Age: 60 Year
  Sex: Male

DRUGS (1)
  1. RINVOQ [Suspect]
     Active Substance: UPADACITINIB
     Dosage: OTHER QUANTITY : TAKE 1 TABLET ;?FREQUENCY : DAILY;?
     Route: 048
     Dates: start: 202206

REACTIONS (1)
  - Infection [None]
